FAERS Safety Report 8268034-7 (Version None)
Quarter: 2012Q2

REPORT INFORMATION
  Report Type: 
  Country: None (occurrence: None)
  Receive Date: 20120409
  Receipt Date: 20120402
  Transmission Date: 20120825
  Serious: Yes (Hospitalization)
  Sender: FDA-Public Use
  Company Number: JP-PFIZER INC-2012060526

PATIENT
  Age: 69 Year
  Sex: Female

DRUGS (2)
  1. PREDNISOLONE [Concomitant]
     Indication: RHEUMATOID ARTHRITIS
     Route: 048
  2. RHEUMATREX [Suspect]
     Dosage: UNK

REACTIONS (2)
  - LYMPHOPROLIFERATIVE DISORDER [None]
  - PANCYTOPENIA [None]
